FAERS Safety Report 4277426-2 (Version None)
Quarter: 2004Q1

REPORT INFORMATION
  Report Type: 
  Country: None (occurrence: None)
  Receive Date: 20040122
  Receipt Date: 20040112
  Transmission Date: 20041129
  Serious: Yes (Hospitalization)
  Sender: FDA-Public Use
  Company Number: US-BRISTOL-MYERS SQUIBB COMPANY-12475778

PATIENT
  Age: 30 Year
  Sex: Female

DRUGS (8)
  1. VIDEX EC [Suspect]
     Indication: ACQUIRED IMMUNODEFICIENCY SYNDROME
     Route: 048
     Dates: start: 19990101
  2. ZERIT [Suspect]
     Indication: ACQUIRED IMMUNODEFICIENCY SYNDROME
     Route: 048
     Dates: start: 19990101, end: 20030901
  3. VIRACEPT [Concomitant]
     Dates: start: 19990101, end: 20030901
  4. SUSTIVA [Concomitant]
     Route: 048
     Dates: start: 20030901
  5. VIREAD [Concomitant]
     Dates: start: 20030901
  6. BIAXIN [Concomitant]
     Dates: start: 20030601
  7. RITONAVIR [Concomitant]
     Dosage: INCREASED TO 400 MG DAILY IN SEP-2003
  8. ETHAMBUTOL HCL [Concomitant]
     Dates: start: 20030601

REACTIONS (2)
  - ALOPECIA [None]
  - BREAST ABSCESS [None]
